FAERS Safety Report 8701510 (Version 2)
Quarter: 2013Q4

REPORT INFORMATION
  Report Type: Spontaneous
  Country: US (occurrence: US)
  Receive Date: 20120802
  Receipt Date: 20131031
  Transmission Date: 20140711
  Serious: Yes (Other)
  Sender: FDA-Public Use
  Company Number: US-009507513-1207USA011484

PATIENT
  Age: 76 Year
  Sex: Female

DRUGS (7)
  1. ZOCOR [Suspect]
     Dosage: 20 MG, QD
     Route: 048
  2. CIPROFLOXACIN [Suspect]
     Dosage: 750 MG, BID
     Route: 048
  3. LANSOPRAZOLE [Concomitant]
  4. FLUTICASONE PROPIONATE (+) SALMETEROL XINAFOATE [Concomitant]
  5. SPIRIVA [Concomitant]
  6. ASPIRIN [Concomitant]
  7. FUROSEMIDE [Concomitant]

REACTIONS (2)
  - Renal failure acute [Unknown]
  - Dehydration [Unknown]
